FAERS Safety Report 23823426 (Version 2)
Quarter: 2025Q1

REPORT INFORMATION
  Report Type: Spontaneous
  Country: US (occurrence: US)
  Receive Date: 20240507
  Receipt Date: 20250110
  Transmission Date: 20250409
  Serious: Yes (Hospitalization, Other)
  Sender: CSL BEHRING
  Company Number: US-BEH-2024171873

PATIENT
  Age: 42 Year
  Sex: Female

DRUGS (5)
  1. HIZENTRA [Suspect]
     Active Substance: HUMAN IMMUNOGLOBULIN G
     Indication: Immunodeficiency common variable
     Dosage: 10 G, QW (EVERY 7 DAYS)
     Route: 058
     Dates: start: 20220405
  2. RECLAST [Suspect]
     Active Substance: ZOLEDRONIC ACID
     Route: 042
  3. DIPHENHYDRAMINE [Concomitant]
     Active Substance: DIPHENHYDRAMINE
  4. METHOTREXATE [Concomitant]
     Active Substance: METHOTREXATE
  5. CYANOCOBALAMIN [Concomitant]
     Active Substance: CYANOCOBALAMIN

REACTIONS (8)
  - Pneumonia [Not Recovered/Not Resolved]
  - Condition aggravated [Unknown]
  - General physical health deterioration [Unknown]
  - Infusion related reaction [Not Recovered/Not Resolved]
  - Product dose omission issue [Not Recovered/Not Resolved]
  - Illness [Not Recovered/Not Resolved]
  - Therapy interrupted [Not Recovered/Not Resolved]
  - Product leakage [Not Recovered/Not Resolved]
